FAERS Safety Report 7277871-7 (Version None)
Quarter: 2011Q1

REPORT INFORMATION
  Report Type: 
  Country: None (occurrence: None)
  Receive Date: 20110207
  Receipt Date: 20110201
  Transmission Date: 20110831
  Serious: Yes (Hospitalization)
  Sender: FDA-Public Use
  Company Number: PL-ELI_LILLY_AND_COMPANY-PL201102000592

PATIENT

DRUGS (10)
  1. THEOVENT [Concomitant]
     Dosage: 300 MG, UNK
     Route: 048
  2. DOLTARD [Concomitant]
     Dosage: 130 MG, UNK
     Route: 048
  3. MIFLONIDE [Concomitant]
  4. GEMCITABINE HYDROCHLORIDE [Suspect]
     Indication: NON-SMALL CELL LUNG CANCER
     Dosage: 800 MG, UNK
     Dates: start: 20100907
  5. CISPLATIN [Suspect]
     Indication: NON-SMALL CELL LUNG CANCER
     Dosage: 800 MG, UNK
     Dates: start: 20100907
  6. ATROVENT [Concomitant]
  7. POLPRAZOL [Concomitant]
     Route: 048
  8. KETONAL [Concomitant]
     Dates: start: 20110129, end: 20110201
  9. NECITUMUMAB (11F8) (LY3012211) [Suspect]
     Indication: NON-SMALL CELL LUNG CANCER
     Dosage: 800 MG, UNK
     Dates: start: 20100907
  10. MORPHIN /00036303/ [Concomitant]
     Dosage: 200 MG, UNK
     Route: 058

REACTIONS (1)
  - ABDOMINAL PAIN [None]
